FAERS Safety Report 8162547-4 (Version None)
Quarter: 2012Q1

REPORT INFORMATION
  Report Type: 
  Country: None (occurrence: None)
  Receive Date: 20120221
  Receipt Date: 20120213
  Transmission Date: 20120608
  Serious: Yes (Life-Threatening, Hospitalization, Other)
  Sender: FDA-Public Use
  Company Number: 2012ST000159

PATIENT
  Age: 18 Year
  Sex: Male
  Weight: 72 kg

DRUGS (9)
  1. METHOTREXATE [Suspect]
     Indication: ACUTE LYMPHOCYTIC LEUKAEMIA
     Dosage: ;X1; INTH    ;X1; INTH
     Route: 037
     Dates: start: 20111229, end: 20111229
  2. METHOTREXATE [Suspect]
     Indication: ACUTE LYMPHOCYTIC LEUKAEMIA
     Dosage: ;X1; INTH    ;X1; INTH
     Route: 037
     Dates: start: 20120113, end: 20120113
  3. PREDNISONE TAB [Suspect]
     Indication: ACUTE LYMPHOCYTIC LEUKAEMIA
     Dosage: 20 UG/ M**2; BID; PO
     Route: 048
     Dates: start: 20111229
  4. VINCRISTINE [Suspect]
     Indication: ACUTE LYMPHOCYTIC LEUKAEMIA
     Dosage: 1.5 MG/ M**2; QW; IV
     Route: 042
     Dates: start: 20111229, end: 20120128
  5. VELCADE [Suspect]
     Indication: ACUTE LEUKAEMIA
     Dosage: 1.3 MG/M**2; QD; IV
     Route: 042
     Dates: start: 20111229, end: 20111230
  6. CYTARABINE [Suspect]
     Indication: ACUTE LYMPHOCYTIC LEUKAEMIA
     Dosage: ;X1; INTH
     Route: 037
     Dates: start: 20111229, end: 20111229
  7. ONCASPAR [Suspect]
     Indication: ACUTE LYMPHOCYTIC LEUKAEMIA
     Dosage: 2500 IU/M2; QW; IM
     Route: 030
     Dates: start: 20111229, end: 20120128
  8. DOXORUBICIN HCL [Suspect]
     Indication: ACUTE LYMPHOCYTIC LEUKAEMIA
     Dosage: 60 MG/ M**2; QD; IV
     Route: 042
     Dates: start: 20111229, end: 20111230
  9. HYDROCORTISONE [Suspect]
     Indication: ACUTE LYMPHOCYTIC LEUKAEMIA
     Dates: start: 20111229

REACTIONS (4)
  - PLATELET COUNT DECREASED [None]
  - RESPIRATORY FAILURE [None]
  - KLEBSIELLA SEPSIS [None]
  - HERPES ZOSTER [None]
